FAERS Safety Report 17682040 (Version 6)
Quarter: 2020Q3

REPORT INFORMATION
  Report Type: Report from Study
  Country: US (occurrence: US)
  Receive Date: 20200418
  Receipt Date: 20200819
  Transmission Date: 20201102
  Serious: Yes (Other)
  Sender: FDA-Public Use
  Company Number: NVSC2020US101475

PATIENT
  Sex: Female

DRUGS (2)
  1. BEOVU [Suspect]
     Active Substance: BROLUCIZUMAB-DBLL
     Dosage: UNK
     Route: 047
  2. BEOVU [Suspect]
     Active Substance: BROLUCIZUMAB-DBLL
     Indication: NEOVASCULAR AGE-RELATED MACULAR DEGENERATION
     Dosage: UNK
     Route: 047

REACTIONS (7)
  - Hypoaesthesia eye [Recovering/Resolving]
  - Eye pain [Recovering/Resolving]
  - Visual impairment [Recovering/Resolving]
  - Macular degeneration [Recovering/Resolving]
  - Cataract [Recovering/Resolving]
  - Cough [Recovering/Resolving]
  - Presbyopia [Recovering/Resolving]
